FAERS Safety Report 22218377 (Version 1)
Quarter: 2023Q2

REPORT INFORMATION
  Report Type: Spontaneous
  Country: US (occurrence: None)
  Receive Date: 20230414
  Receipt Date: 20230414
  Transmission Date: 20230721
  Serious: No
  Sender: FDA-Public Use
  Company Number: None

PATIENT
  Age: 92 Year
  Sex: Male
  Weight: 87.75 kg

DRUGS (8)
  1. TAMSULOSIN [Suspect]
     Active Substance: TAMSULOSIN
     Indication: Prostate cancer
     Dosage: FREQUENCY : AT BEDTIME;?
     Route: 048
     Dates: start: 20230406, end: 20230411
  2. TAMSULOSIN [Suspect]
     Active Substance: TAMSULOSIN
     Indication: Urinary retention
  3. METOPROLOL [Concomitant]
     Active Substance: METOPROLOL
  4. CAPTOPRIL [Concomitant]
     Active Substance: CAPTOPRIL
  5. ISOSORBIDE [Concomitant]
     Active Substance: ISOSORBIDE
  6. VITAMIN D3 [Concomitant]
     Active Substance: CHOLECALCIFEROL
  7. MAGNESIUM [Concomitant]
     Active Substance: MAGNESIUM
  8. ASPIRIN [Concomitant]
     Active Substance: ASPIRIN

REACTIONS (12)
  - Fatigue [None]
  - Brain fog [None]
  - Dysuria [None]
  - Asthenia [None]
  - Headache [None]
  - Arthralgia [None]
  - Movement disorder [None]
  - Balance disorder [None]
  - Dizziness [None]
  - Disturbance in attention [None]
  - Body temperature increased [None]
  - Diarrhoea [None]

NARRATIVE: CASE EVENT DATE: 20230410
